FAERS Safety Report 16355480 (Version 1)
Quarter: 2019Q2

REPORT INFORMATION
  Report Type: Spontaneous
  Country: GB (occurrence: GB)
  Receive Date: 20190525
  Receipt Date: 20190525
  Transmission Date: 20190711
  Serious: Yes (Life-Threatening)
  Sender: FDA-Public Use
  Company Number: GB-TEVA-2019-GB-1053619

PATIENT
  Age: 36 Year
  Sex: Male
  Weight: 55 kg

DRUGS (11)
  1. NITROFURANTOIN. [Suspect]
     Active Substance: NITROFURANTOIN
     Route: 065
     Dates: start: 20190422
  2. ESOMEPRAZOLE. [Concomitant]
     Active Substance: ESOMEPRAZOLE MAGNESIUM
     Dates: start: 20180702
  3. LAXIDO [Concomitant]
     Active Substance: POLYETHYLENE GLYCOL 3350\POTASSIUM CHLORIDE\SODIUM BICARBONATE\SODIUM CHLORIDE
     Dosage: TAKE AS PER BOWEL MANAGEMENT PLAN
     Dates: start: 20180702
  4. CLONAZEPAM. [Concomitant]
     Active Substance: CLONAZEPAM
     Dosage: HALF IN THE MORNING AND ONE AT NIGHT
     Dates: start: 20180702
  5. SUDOCREM [Concomitant]
     Active Substance: LANOLIN\ZINC OXIDE
     Dosage: AS DIRECTED
     Dates: start: 20180702
  6. CODEINE PHOSPHATE [Concomitant]
     Active Substance: CODEINE PHOSPHATE
     Dosage: TAKE ONE OR TWO UP TO FOUR TIMES A DAY
     Dates: start: 20180702, end: 20190404
  7. ZYPREXA [Concomitant]
     Active Substance: OLANZAPINE
     Dosage: AT NIGHT AS NEEDED
     Dates: start: 20180702
  8. NITROFURANTOIN. [Suspect]
     Active Substance: NITROFURANTOIN
     Dosage: FOR SEVEN DAYS
     Dates: start: 20190418
  9. GAVISCON ADVANCE [Concomitant]
     Active Substance: POTASSIUM BICARBONATE\SODIUM ALGINATE
     Dosage: 5ML OR 10ML 4 TIMES/DAY
     Dates: start: 20180702
  10. EPILIM [Concomitant]
     Active Substance: VALPROATE SODIUM
     Dates: start: 20180702
  11. HYOSCINE HYDROBROMIDE [Concomitant]
     Active Substance: SCOPOLAMINE HYDROBROMIDE
     Dosage: AS DIRECTED
     Dates: start: 20180702

REACTIONS (2)
  - Respiratory tract oedema [Unknown]
  - Dyspnoea [Unknown]

NARRATIVE: CASE EVENT DATE: 20190422
